FAERS Safety Report 8484124-8 (Version None)
Quarter: 2012Q3

REPORT INFORMATION
  Report Type: 
  Country: None (occurrence: None)
  Receive Date: 20120703
  Receipt Date: 20120621
  Transmission Date: 20120928
  Serious: Yes (Hospitalization, Other)
  Sender: FDA-Public Use
  Company Number: JP-VERTEX PHARMACEUTICALS INC.-AE-2012-003528

PATIENT
  Age: 65 Year
  Sex: Male

DRUGS (10)
  1. PEG-INTRON [Concomitant]
     Indication: HEPATITIS C
     Route: 058
     Dates: start: 20120117, end: 20120221
  2. MYSER [Concomitant]
     Route: 061
     Dates: start: 20120221
  3. MAGMITT [Concomitant]
     Route: 048
     Dates: start: 20120214
  4. REBETOL [Concomitant]
     Route: 048
     Dates: start: 20120214, end: 20120228
  5. XYZAL [Concomitant]
     Route: 048
     Dates: start: 20120228
  6. TELAVIC (TELAPREVIR) [Suspect]
     Indication: HEPATITIS C
     Route: 048
     Dates: start: 20120117, end: 20120228
  7. REBETOL [Concomitant]
     Route: 048
     Dates: start: 20120207, end: 20120213
  8. TALION OD [Concomitant]
     Route: 048
     Dates: start: 20120221, end: 20120228
  9. REBETOL [Concomitant]
     Indication: HEPATITIS C
     Route: 048
     Dates: start: 20120117, end: 20120206
  10. ALLOPURINOL [Concomitant]
     Route: 048
     Dates: end: 20120306

REACTIONS (6)
  - RASH [None]
  - ANAEMIA [None]
  - EOSINOPHIL COUNT INCREASED [None]
  - PYREXIA [None]
  - DRUG RASH WITH EOSINOPHILIA AND SYSTEMIC SYMPTOMS [None]
  - STOMATITIS [None]
